FAERS Safety Report 12861815 (Version 1)
Quarter: 2016Q4

REPORT INFORMATION
  Report Type: Spontaneous
  Country: US (occurrence: US)
  Receive Date: 20161018
  Receipt Date: 20161018
  Transmission Date: 20170207
  Serious: No
  Sender: FDA-Public Use
  Company Number: None

PATIENT
  Age: 68 Year
  Sex: Female

DRUGS (5)
  1. ORENCIA [Suspect]
     Active Substance: ABATACEPT
     Indication: HYPERLIPIDAEMIA
  2. ORENCIA [Suspect]
     Active Substance: ABATACEPT
     Indication: ESSENTIAL HYPERTENSION
  3. ORENCIA [Suspect]
     Active Substance: ABATACEPT
     Indication: OSTEOPOROSIS
  4. ORENCIA [Suspect]
     Active Substance: ABATACEPT
     Indication: NEOPLASM MALIGNANT
  5. ORENCIA [Suspect]
     Active Substance: ABATACEPT
     Indication: ARTHROPATHY

REACTIONS (1)
  - Headache [None]

NARRATIVE: CASE EVENT DATE: 20161018
